FAERS Safety Report 21296878 (Version 1)
Quarter: 2022Q3

REPORT INFORMATION
  Report Type: Report from Study
  Country: CA (occurrence: CA)
  Receive Date: 20220906
  Receipt Date: 20220906
  Transmission Date: 20221027
  Serious: Yes (Other)
  Sender: FDA-Public Use
  Company Number: CA-NOVARTISPH-NVSC2022CA197582

PATIENT
  Age: 48 Year
  Sex: Female

DRUGS (3)
  1. MONTELUKAST [Suspect]
     Active Substance: MONTELUKAST SODIUM
     Indication: Chronic spontaneous urticaria
     Dosage: 10 MG, QD (1X10MG)
     Route: 065
     Dates: start: 202207
  2. REACTINE [Concomitant]
     Indication: Chronic spontaneous urticaria
     Dosage: 2 DOSAGE FORM, BID
     Route: 048
     Dates: start: 202207
  3. RUPATADINE FUMARATE [Concomitant]
     Active Substance: RUPATADINE FUMARATE
     Indication: Chronic spontaneous urticaria
     Dosage: 2 DOSAGE FORM, BID
     Route: 048
     Dates: start: 202207

REACTIONS (6)
  - Haemorrhage [Unknown]
  - Skin disorder [Unknown]
  - Urticaria [Unknown]
  - Scratch [Unknown]
  - Middle insomnia [Unknown]
  - Eczema [Unknown]

NARRATIVE: CASE EVENT DATE: 20220830
